FAERS Safety Report 8186750-2 (Version None)
Quarter: 2012Q1

REPORT INFORMATION
  Report Type: 
  Country: None (occurrence: None)
  Receive Date: 20120306
  Receipt Date: 20120306
  Transmission Date: 20120608
  Serious: No
  Sender: FDA-Public Use
  Company Number: None

PATIENT
  Age: 66 Year
  Sex: Female
  Weight: 57.152 kg

DRUGS (1)
  1. DESIPRAMINE HCL [Suspect]
     Indication: NERVE COMPRESSION
     Route: 048
     Dates: start: 20120125, end: 20120129

REACTIONS (3)
  - DYSGEUSIA [None]
  - GLOSSODYNIA [None]
  - DRY MOUTH [None]
